FAERS Safety Report 24155689 (Version 1)
Quarter: 2024Q3

REPORT INFORMATION
  Report Type: Spontaneous
  Country: US (occurrence: US)
  Receive Date: 20240731
  Receipt Date: 20240731
  Transmission Date: 20241016
  Serious: No
  Sender: ARBOR
  Company Number: US-AZURITY PHARMACEUTICALS, INC.-US-2023ARB004492

PATIENT
  Age: 8 Year
  Sex: Female
  Weight: 48 kg

DRUGS (4)
  1. TRIPTODUR [Suspect]
     Active Substance: TRIPTORELIN
     Indication: Product used for unknown indication
     Dosage: UNK, SINGLE, Q6MONTHS
  2. TRIPTODUR [Suspect]
     Active Substance: TRIPTORELIN
     Dosage: UNK, SINGLE, INCRESED TO EVERY 5 MONTHS
  3. TRIPTODUR [Suspect]
     Active Substance: TRIPTORELIN
     Dosage: UNK
  4. TRIPTODUR [Suspect]
     Active Substance: TRIPTORELIN
     Dosage: UNK

REACTIONS (2)
  - Breast enlargement [Not Recovered/Not Resolved]
  - Product prescribing error [Unknown]
